FAERS Safety Report 7280921-5 (Version None)
Quarter: 2011Q1

REPORT INFORMATION
  Report Type: 
  Country: None (occurrence: None)
  Receive Date: 20110208
  Receipt Date: 20110203
  Transmission Date: 20110831
  Serious: Yes (Hospitalization)
  Sender: FDA-Public Use
  Company Number: AU-AMGEN-AUSSP2011006713

PATIENT
  Sex: Female

DRUGS (1)
  1. NEUPOGEN [Suspect]
     Indication: PRODUCT USED FOR UNKNOWN INDICATION
     Dosage: UNK
     Dates: start: 20091115

REACTIONS (7)
  - NEUTROPHIL COUNT DECREASED [None]
  - PRODUCT QUALITY ISSUE [None]
  - RASH ERYTHEMATOUS [None]
  - INJECTION SITE PAIN [None]
  - WHITE BLOOD CELL COUNT DECREASED [None]
  - MALAISE [None]
  - ECZEMA [None]
